FAERS Safety Report 9515146 (Version 1)
Quarter: 2013Q1

REPORT INFORMATION
  Report Type: Spontaneous
  Country: US (occurrence: None)
  Receive Date: 20130305
  Receipt Date: 20130305
  Transmission Date: 20140127
  Serious: Yes (Other)
  Sender: FDA-Public Use
  Company Number: 163-21880-12122833

PATIENT
  Age: 41 Year
  Sex: Male

DRUGS (9)
  1. REVLIMID [Suspect]
     Indication: PLASMA CELL MYELOMA
     Dosage: 25 MG, 21 IN 21 D, PO
     Route: 048
     Dates: start: 20121126
  2. AMLODIPINE BESYLATE (AMLODIPINE BESILATE) (UNKNOWN) [Concomitant]
  3. NYSTATIN (NYSTATIN) (UNKNOWN) [Concomitant]
  4. GABAPENTIN (GABAPENTIN) (UNKNOWN) (GABAPENTIN) [Concomitant]
  5. ROBAXIN (METHOCARBAMOL) (UNKNOWN) [Concomitant]
  6. LOVENOX (HEPARIN-FRACTION, SODIUM SALT) (UNKNOWN) [Concomitant]
  7. COLACE (DOCUSATE SODIUM) (UNKNOWN) [Concomitant]
  8. DIAZEPAM (DIAZEPAM) (UNKNOWN) (DIAZEPAM) [Concomitant]
  9. METHADONE HCL (METHADONE HYDROCHLORIDE) (UNKNOWN) [Concomitant]

REACTIONS (2)
  - Somnolence [None]
  - Decreased appetite [None]
